FAERS Safety Report 7102162-4 (Version None)
Quarter: 2010Q4

REPORT INFORMATION
  Report Type: 
  Country: None (occurrence: None)
  Receive Date: 20101115
  Receipt Date: 20101104
  Transmission Date: 20110411
  Serious: Yes (Death)
  Sender: FDA-Public Use
  Company Number: JP-GENZYME-CERZ-1001631

PATIENT

DRUGS (6)
  1. CEREZYME [Suspect]
     Indication: GAUCHER'S DISEASE
     Dosage: 120 U, Q2W
     Route: 042
     Dates: start: 20100618, end: 20100924
  2. CILAZAPRIL [Concomitant]
     Indication: HYPERTROPHIC CARDIOMYOPATHY
     Dosage: 0.06 MG, BID
     Dates: start: 20100723, end: 20101008
  3. FAMOTIDINE [Concomitant]
     Indication: GASTROINTESTINAL HAEMORRHAGE
     Dosage: 1 MG, BID
     Dates: start: 20100630, end: 20101008
  4. FAMOTIDINE [Concomitant]
     Indication: PACKED RED BLOOD CELL TRANSFUSION
     Dosage: 20 ML, ONCE
     Dates: start: 20100823, end: 20100823
  5. FAMOTIDINE [Concomitant]
     Dosage: 20 ML, ONCE
     Dates: start: 20100917, end: 20100917
  6. CEFAZOLIN SODIUM [Concomitant]
     Indication: ENDOPHTHALMITIS
     Dosage: 240 MG, UNK
     Dates: start: 20100927, end: 20101001

REACTIONS (2)
  - ENDOPHTHALMITIS [None]
  - RENAL FAILURE [None]
